FAERS Safety Report 12521247 (Version 1)
Quarter: 2016Q3

REPORT INFORMATION
  Report Type: Spontaneous
  Country: CN (occurrence: CN)
  Receive Date: 20160701
  Receipt Date: 20160701
  Transmission Date: 20161109
  Serious: Yes (Other)
  Sender: FDA-Public Use
  Company Number: CN-BAXTER-2016BAX033942

PATIENT
  Age: 56 Year
  Sex: Female
  Weight: 60 kg

DRUGS (18)
  1. 0.9% SODIUM CHLORIDE INJECTION [Suspect]
     Active Substance: SODIUM CHLORIDE
     Dosage: DOSE RE-INTRODUCED
     Route: 041
  2. AONOUXIAN [Suspect]
     Active Substance: DEXRAZOXANE
     Dosage: DOSE RE-INTRODUCED
     Route: 041
  3. 0.9% SODIUM CHLORIDE INJECTION [Suspect]
     Active Substance: SODIUM CHLORIDE
     Dosage: DOSE RE-INTRODUCED
     Route: 041
  4. 0.9% SODIUM CHLORIDE INJECTION [Suspect]
     Active Substance: SODIUM CHLORIDE
     Indication: MEDICATION DILUTION
     Route: 041
     Dates: start: 20150916, end: 20150916
  5. PHARMORUBICIN [Suspect]
     Active Substance: EPIRUBICIN
     Dosage: DOSE RE-INTRODUCED
     Route: 041
  6. LOSEC [Suspect]
     Active Substance: OMEPRAZOLE
     Indication: BREAST MASS
     Route: 041
     Dates: start: 20150916, end: 20150916
  7. LOSEC [Suspect]
     Active Substance: OMEPRAZOLE
     Dosage: DOSE RE-INTRODUCED
     Route: 041
  8. PHARMORUBICIN [Suspect]
     Active Substance: EPIRUBICIN
     Indication: BREAST MASS
     Route: 041
     Dates: start: 20150916, end: 20150916
  9. AONOUXIAN [Suspect]
     Active Substance: DEXRAZOXANE
     Indication: BREAST MASS
     Route: 041
     Dates: start: 20150916, end: 20150916
  10. XINSHUNER [Suspect]
     Active Substance: TROPISETRON HYDROCHLORIDE
     Dosage: DOSE RE-INTRODUCED
     Route: 041
  11. 0.9% SODIUM CHLORIDE INJECTION [Suspect]
     Active Substance: SODIUM CHLORIDE
     Dosage: DOSE RE-INTRODUCED
     Route: 041
  12. XINSHUNER [Suspect]
     Active Substance: TROPISETRON HYDROCHLORIDE
     Indication: BREAST MASS
     Route: 041
     Dates: start: 20150916, end: 20150916
  13. 0.9% SODIUM CHLORIDE INJECTION [Suspect]
     Active Substance: SODIUM CHLORIDE
     Route: 041
     Dates: start: 20150916, end: 20150916
  14. CYCLOPHOSPHAMIDE. [Suspect]
     Active Substance: CYCLOPHOSPHAMIDE
     Indication: BREAST MASS
     Route: 041
     Dates: start: 20150916, end: 20150916
  15. CYCLOPHOSPHAMIDE. [Suspect]
     Active Substance: CYCLOPHOSPHAMIDE
     Dosage: DOSE RE-INTRODUCED
     Route: 041
  16. 0.9% SODIUM CHLORIDE INJECTION [Suspect]
     Active Substance: SODIUM CHLORIDE
     Route: 041
     Dates: start: 20150916, end: 20150916
  17. 0.9% SODIUM CHLORIDE INJECTION [Suspect]
     Active Substance: SODIUM CHLORIDE
     Route: 041
     Dates: start: 20150916, end: 20150916
  18. 0.9% SODIUM CHLORIDE INJECTION [Suspect]
     Active Substance: SODIUM CHLORIDE
     Dosage: DOSE RE-INTRODUCED
     Route: 041

REACTIONS (1)
  - Bone marrow failure [Recovered/Resolved]

NARRATIVE: CASE EVENT DATE: 20150925
